FAERS Safety Report 5639905-2 (Version None)
Quarter: 2008Q1

REPORT INFORMATION
  Report Type: 
  Country: None (occurrence: None)
  Receive Date: 20080226
  Receipt Date: 20080226
  Transmission Date: 20080703
  Serious: Yes (Life-Threatening, Hospitalization)
  Sender: FDA-Public Use
  Company Number: None

PATIENT
  Age: 83 Year
  Sex: Male
  Weight: 76.6579 kg

DRUGS (9)
  1. ITRACONAZOLE [Suspect]
     Indication: HISTOPLASMOSIS
     Dosage: 2 DAILY PO
     Route: 047
     Dates: start: 20080118, end: 20080220
  2. SIMVASTATIN [Suspect]
     Indication: BLOOD CHOLESTEROL
     Dosage: 40MG DAILY PO; MANY YEARS 1996
     Dates: start: 19960601, end: 20080220
  3. ALLOPURINOL [Concomitant]
  4. ATENOLOL [Concomitant]
  5. AMLODIPINE BESYLATE [Concomitant]
  6. AVODART [Concomitant]
  7. DOXAZOSIN MESYLATE [Concomitant]
  8. LASIX [Concomitant]
  9. ASPIRIN [Concomitant]

REACTIONS (5)
  - CHROMATURIA [None]
  - FATIGUE [None]
  - HISTOPLASMOSIS [None]
  - MALAISE [None]
  - MYALGIA [None]
